FAERS Safety Report 8465317-2 (Version None)
Quarter: 2012Q2

REPORT INFORMATION
  Report Type: 
  Country: None (occurrence: None)
  Receive Date: 20120626
  Receipt Date: 20120618
  Transmission Date: 20120825
  Serious: Yes (Hospitalization)
  Sender: FDA-Public Use
  Company Number: US-BAYER-2012-061604

PATIENT
  Age: 57 Year
  Sex: Female
  Weight: 113 kg

DRUGS (10)
  1. MICARDIS HCT [Concomitant]
     Dosage: 80MG/25 MG, UNK
  2. YAZ [Suspect]
     Dosage: UNK
  3. METOPROLOL TARTRATE [Concomitant]
     Dosage: 50 MG, DAILY
  4. DROSPIRENONE AND ETHINYL ESTRADIOL [Suspect]
     Dosage: UNK
  5. NORVASC [Concomitant]
     Dosage: 10 MG, DAILY
  6. DIAZEPAM [Concomitant]
     Dosage: 5 MG, UNK
  7. CARDURA [Concomitant]
     Dosage: 4 MG, DAILY
  8. HYDROCODONE BITARTRATE + ACETAMINOPHEN [Concomitant]
     Dosage: 5MG-500MG, UNK
  9. XANAX [Concomitant]
     Indication: ANXIETY
     Dosage: UNK UNK, AS NEEDED
  10. MICRONOR [Concomitant]
     Dosage: 80/25, UNK

REACTIONS (2)
  - PULMONARY EMBOLISM [None]
  - DEEP VEIN THROMBOSIS [None]
